FAERS Safety Report 18421965 (Version 6)
Quarter: 2023Q2

REPORT INFORMATION
  Report Type: Spontaneous
  Country: US (occurrence: US)
  Receive Date: 20201023
  Receipt Date: 20230526
  Transmission Date: 20230721
  Serious: Yes (Other)
  Sender: FDA-Public Use
  Company Number: US-PFIZER INC-2020409829

PATIENT
  Age: 73 Year
  Sex: Female

DRUGS (1)
  1. XELJANZ XR [Suspect]
     Active Substance: TOFACITINIB CITRATE
     Dosage: 11 MG

REACTIONS (5)
  - Pleural effusion [Recovering/Resolving]
  - Dyspnoea [Not Recovered/Not Resolved]
  - Musculoskeletal disorder [Unknown]
  - Memory impairment [Unknown]
  - Pain in extremity [Unknown]

NARRATIVE: CASE EVENT DATE: 20220301
